FAERS Safety Report 10545922 (Version 1)
Quarter: 2014Q4

REPORT INFORMATION
  Report Type: Report from Study
  Country: US (occurrence: US)
  Receive Date: 20141027
  Receipt Date: 20141027
  Transmission Date: 20150529
  Serious: Yes (Other)
  Sender: FDA-Public Use
  Company Number: US-ABBVIE-14P-163-1281440-00

PATIENT
  Sex: Female
  Weight: 73.55 kg

DRUGS (1)
  1. LUPRON DEPOT [Suspect]
     Active Substance: LEUPROLIDE ACETATE
     Indication: ENDOMETRIOSIS
     Route: 030
     Dates: start: 2007, end: 2007

REACTIONS (9)
  - Abdominal pain [Not Recovered/Not Resolved]
  - Ovarian cyst [Unknown]
  - Sinusitis [Recovering/Resolving]
  - Hot flush [Recovered/Resolved]
  - Alopecia [Recovered/Resolved]
  - Endometriosis [Not Recovered/Not Resolved]
  - Ear infection [Recovering/Resolving]
  - Mood swings [Recovered/Resolved]
  - Back pain [Not Recovered/Not Resolved]

NARRATIVE: CASE EVENT DATE: 2007
